FAERS Safety Report 13772585 (Version 1)
Quarter: 2017Q3

REPORT INFORMATION
  Report Type: Spontaneous
  Country: SG (occurrence: SG)
  Receive Date: 20170720
  Receipt Date: 20170720
  Transmission Date: 20171127
  Serious: Yes (Hospitalization)
  Sender: FDA-Public Use
  Company Number: SG-BAYER-2017-132766

PATIENT
  Sex: Male

DRUGS (1)
  1. ACETYLSALICYLIC ACID (} 100 MG) [Suspect]
     Active Substance: ASPIRIN

REACTIONS (8)
  - Foetal exposure during pregnancy [None]
  - Low birth weight baby [None]
  - Pneumonia [None]
  - Hypoglycaemia neonatal [None]
  - Sepsis neonatal [None]
  - Premature baby [None]
  - Neonatal respiratory distress syndrome [None]
  - Anaemia neonatal [None]
